FAERS Safety Report 24429180 (Version 3)
Quarter: 2025Q4

REPORT INFORMATION
  Report Type: Report from Study
  Country: CA (occurrence: CA)
  Receive Date: 20241011
  Receipt Date: 20251023
  Transmission Date: 20260117
  Serious: Yes (Other)
  Sender: TEVA
  Company Number: CA-TEVA-VS-3252621

PATIENT
  Age: 62 Year
  Sex: Female

DRUGS (4)
  1. COPAXONE [Suspect]
     Active Substance: GLATIRAMER ACETATE
     Indication: Multiple sclerosis
     Dosage: C-SYNC SYRINGE
     Route: 058
     Dates: start: 20131001
  2. ELAVIL [Concomitant]
     Active Substance: AMITRIPTYLINE HYDROCHLORIDE
     Indication: Product used for unknown indication
     Dosage: ACTIVE
  3. CALCIUM [Concomitant]
     Active Substance: CALCIUM
     Indication: Product used for unknown indication
     Dosage: ACTIVE
  4. VITAMIN D [Concomitant]
     Active Substance: VITAMIN D NOS
     Indication: Product used for unknown indication
     Dosage: ACTIVE

REACTIONS (9)
  - Tremor [Unknown]
  - Wrong technique in device usage process [Unknown]
  - Malaise [Unknown]
  - Injury associated with device [Recovered/Resolved]
  - Skin discolouration [Unknown]
  - Dyspnoea [Unknown]
  - Feeling cold [Unknown]
  - Feeling hot [Unknown]
  - Flushing [Unknown]

NARRATIVE: CASE EVENT DATE: 20210101
